FAERS Safety Report 16283046 (Version 2)
Quarter: 2019Q2

REPORT INFORMATION
  Report Type: Spontaneous
  Country: BD (occurrence: BD)
  Receive Date: 20190507
  Receipt Date: 20190507
  Transmission Date: 20190711
  Serious: Yes (Other)
  Sender: FDA-Public Use
  Company Number: PHHY2019BD102900

PATIENT
  Age: 34 Year
  Sex: Female

DRUGS (11)
  1. PREDNISOLONE. [Suspect]
     Active Substance: PREDNISOLONE
     Indication: ANTIPHOSPHOLIPID SYNDROME
     Dosage: 55 MG, QD
     Route: 065
  2. PREDNISOLONE. [Suspect]
     Active Substance: PREDNISOLONE
     Dosage: 15 MG QD
     Route: 065
  3. HEPARIN [Suspect]
     Active Substance: HEPARIN SODIUM
     Indication: ANTIPHOSPHOLIPID SYNDROME
     Dosage: 10000 IU, 2 ML BID
     Route: 065
     Dates: start: 2010
  4. HYDROXYCHLOROQUINE SULPHATE [Suspect]
     Active Substance: HYDROXYCHLOROQUINE
     Indication: ANTIPHOSPHOLIPID SYNDROME
     Dosage: 300 MG, QD
     Route: 065
  5. ASPIRIN. [Suspect]
     Active Substance: ASPIRIN
     Dosage: 75 MG QD
     Route: 065
  6. HYDROXYCHLOROQUINE SULPHATE [Suspect]
     Active Substance: HYDROXYCHLOROQUINE
     Dosage: 400 MG, QD
     Route: 065
  7. ASPIRIN. [Suspect]
     Active Substance: ASPIRIN
     Indication: ANTIPHOSPHOLIPID SYNDROME
     Dosage: 75 MG, QD
     Route: 065
  8. ENOXAPARIN [Suspect]
     Active Substance: ENOXAPARIN
     Dosage: 40 MG, QD
     Route: 065
  9. ENOXAPARIN [Suspect]
     Active Substance: ENOXAPARIN
     Dosage: 60 MG QD
     Route: 065
  10. ASPIRIN. [Suspect]
     Active Substance: ASPIRIN
     Dosage: 75 MG QD
     Route: 065
  11. ENOXAPARIN [Suspect]
     Active Substance: ENOXAPARIN
     Indication: ANTIPHOSPHOLIPID SYNDROME
     Dosage: 60 MG, QD
     Route: 065

REACTIONS (4)
  - Thrombocytopenia [Recovering/Resolving]
  - Maternal exposure during pregnancy [Unknown]
  - Product use in unapproved indication [Unknown]
  - Premature delivery [Unknown]
